FAERS Safety Report 6993002-2 (Version None)
Quarter: 2010Q3

REPORT INFORMATION
  Report Type: 
  Country: None (occurrence: None)
  Receive Date: 20100917
  Receipt Date: 20100913
  Transmission Date: 20110219
  Serious: Yes (Other)
  Sender: FDA-Public Use
  Company Number: CN-BRISTOL-MYERS SQUIBB COMPANY-15283914

PATIENT
  Age: 52 Year
  Sex: Male

DRUGS (2)
  1. BARACLUDE [Suspect]
     Indication: HEPATITIS B
     Dosage: INTERRUPTED IN JUL2009.RESTARTED ON DEC2009 WITH 0.5MGQD
     Route: 048
     Dates: start: 20080901
  2. METFORMIN HCL [Suspect]
     Indication: HYPERGLYCAEMIA
     Dates: start: 20091101

REACTIONS (3)
  - ALANINE AMINOTRANSFERASE INCREASED [None]
  - BLOOD GLUCOSE INCREASED [None]
  - HEPATITIS B DNA INCREASED [None]
